FAERS Safety Report 5546184-3 (Version None)
Quarter: 2007Q4

REPORT INFORMATION
  Report Type: 
  Country: None (occurrence: None)
  Receive Date: 20071206
  Receipt Date: 20071122
  Transmission Date: 20080405
  Serious: Yes (Hospitalization)
  Sender: FDA-Public Use
  Company Number: 2007S1012421

PATIENT
  Age: 67 Year
  Sex: Female

DRUGS (7)
  1. SERTRALINE [Suspect]
     Indication: DEPRESSION
     Dosage: 50 MG; ORAL
     Route: 048
     Dates: start: 20071108, end: 20071109
  2. AMOXICILLIN (AMOXICILLIN) (CON.) [Concomitant]
  3. ASPIRIN /00002701/ (ACETYLSALICYLIC ACID) (CON.) [Concomitant]
  4. ATENOLOL (ATENOLOL) (CON.) [Concomitant]
  5. NICORANDIL (NICORANDIL) (CON.) [Concomitant]
  6. SIMVASTATIN (SIMVASTATIN) (CON.) [Concomitant]
  7. TRAMADOL (TRAMADOL) (CON.) [Concomitant]

REACTIONS (3)
  - DIZZINESS [None]
  - PALPITATIONS [None]
  - TACHYCARDIA [None]
